FAERS Safety Report 19260449 (Version 3)
Quarter: 2022Q3

REPORT INFORMATION
  Report Type: Spontaneous
  Country: US (occurrence: US)
  Receive Date: 20210514
  Receipt Date: 20220715
  Transmission Date: 20221027
  Serious: Yes (Other)
  Sender: FDA-Public Use
  Company Number: US-PFIZER INC-2021438528

PATIENT
  Age: 80 Year
  Sex: Female

DRUGS (1)
  1. VYNDAMAX [Suspect]
     Active Substance: TAFAMIDIS
     Dosage: 61 MG

REACTIONS (10)
  - Autoimmune disorder [Unknown]
  - Pneumonia [Recovering/Resolving]
  - Quality of life decreased [Unknown]
  - Myocardial fibrosis [Unknown]
  - Malaise [Unknown]
  - Nausea [Unknown]
  - Dyspnoea [Unknown]
  - Pain [Unknown]
  - Loss of personal independence in daily activities [Unknown]
  - COVID-19 [Recovering/Resolving]

NARRATIVE: CASE EVENT DATE: 20220201
